FAERS Safety Report 4282590-5 (Version None)
Quarter: 2004Q1

REPORT INFORMATION
  Report Type: 
  Country: None (occurrence: None)
  Receive Date: 20040130
  Receipt Date: 20020417
  Transmission Date: 20041129
  Serious: No
  Sender: FDA-Public Use
  Company Number: US-BRISTOL-MYERS SQUIBB COMPANY-11828100

PATIENT
  Age: 37 Year
  Sex: Female
  Weight: 121 kg

DRUGS (3)
  1. SERZONE [Suspect]
     Indication: DEPRESSION
     Dosage: ON 200MG TABS IN 2000-2001, AS PER PHARMACY RECORDS. MD NOTE OF 3/13/02:   STOPPED SERZONE
     Route: 048
     Dates: end: 20020313
  2. IBUPROFEN [Concomitant]
  3. LITHIUM CARBONATE [Concomitant]

REACTIONS (11)
  - COSTOCHONDRITIS [None]
  - DIZZINESS [None]
  - GASTROOESOPHAGEAL REFLUX DISEASE [None]
  - HEADACHE [None]
  - HELICOBACTER GASTRITIS [None]
  - MALAISE [None]
  - NAUSEA [None]
  - SINOBRONCHITIS [None]
  - SINUSITIS [None]
  - URINARY TRACT INFECTION [None]
  - VISION BLURRED [None]
